FAERS Safety Report 13264791 (Version 1)
Quarter: 2017Q1

REPORT INFORMATION
  Report Type: Report from Study
  Country: IT (occurrence: IT)
  Receive Date: 20170223
  Receipt Date: 20170223
  Transmission Date: 20170428
  Serious: Yes (Other)
  Sender: FDA-Public Use
  Company Number: IT-VIIV HEALTHCARE LIMITED-IT2017GSK025456

PATIENT

DRUGS (3)
  1. LAMIVUDINE. [Suspect]
     Active Substance: LAMIVUDINE
     Indication: CHRONIC HEPATITIS B
  2. ADEFOVIR [Concomitant]
     Active Substance: ADEFOVIR
     Indication: CHRONIC HEPATITIS B
     Dosage: 10 MG, QD
     Route: 048
  3. TENOFOVIR DISOPROXIL FUMARATE. [Suspect]
     Active Substance: TENOFOVIR DISOPROXIL FUMARATE
     Indication: CHRONIC HEPATITIS B

REACTIONS (3)
  - Pathogen resistance [Unknown]
  - Proteinuria [Unknown]
  - Drug resistance [Unknown]
